FAERS Safety Report 7625473-2 (Version None)
Quarter: 2011Q3

REPORT INFORMATION
  Report Type: 
  Country: None (occurrence: None)
  Receive Date: 20110721
  Receipt Date: 20110711
  Transmission Date: 20111222
  Serious: Yes (Other)
  Sender: FDA-Public Use
  Company Number: US-BAYER-2011-018446

PATIENT
  Age: 29 Year
  Sex: Female
  Weight: 105.67 kg

DRUGS (3)
  1. TRAMADOL HCL [Concomitant]
  2. YAZ [Suspect]
     Indication: CONTRACEPTION
     Dosage: UNK
     Route: 048
     Dates: start: 20070701, end: 20090501
  3. MOBIC [Concomitant]

REACTIONS (7)
  - MOBILITY DECREASED [None]
  - EMOTIONAL DISTRESS [None]
  - POST THROMBOTIC SYNDROME [None]
  - ERYTHEMA [None]
  - PAIN [None]
  - OEDEMA PERIPHERAL [None]
  - DEEP VEIN THROMBOSIS [None]
